FAERS Safety Report 8825536 (Version 1)
Quarter: 2012Q4

REPORT INFORMATION
  Report Type: 
  Country: US (occurrence: US)
  Receive Date: 20121004
  Receipt Date: 20121004
  Transmission Date: 20130627
  Serious: Yes (Hospitalization, Other)
  Sender: FDA-Public Use
  Company Number: US-TEVA-362057USA

PATIENT
  Age: 43 Year
  Sex: Female

DRUGS (1)
  1. COPAXONE [Suspect]
     Indication: MULTIPLE SCLEROSIS
     Dates: end: 201108

REACTIONS (6)
  - Swollen tongue [Unknown]
  - Hypersensitivity [Unknown]
  - Lip swelling [Unknown]
  - Urticaria [Unknown]
  - Injection site pain [Unknown]
  - Injection site erythema [Unknown]
